FAERS Safety Report 8523681-X (Version None)
Quarter: 2012Q3

REPORT INFORMATION
  Report Type: 
  Country: None (occurrence: None)
  Receive Date: 20120720
  Receipt Date: 20120718
  Transmission Date: 20120928
  Serious: Yes (Hospitalization)
  Sender: FDA-Public Use
  Company Number: NZ-PFIZER INC-2012172427

PATIENT
  Age: 81 Year
  Sex: Female

DRUGS (4)
  1. SIMVASTATIN [Concomitant]
     Dosage: UNK
  2. PARACETAMOL [Concomitant]
     Dosage: UNK
  3. INSULIN [Concomitant]
     Dosage: UNK
  4. VARENICLINE TARTRATE [Suspect]
     Dosage: UNK

REACTIONS (1)
  - FALL [None]
